FAERS Safety Report 8901060 (Version 2)
Quarter: 2012Q4

REPORT INFORMATION
  Report Type: 
  Country: AU (occurrence: AU)
  Receive Date: 20121109
  Receipt Date: 20121213
  Transmission Date: 20130627
  Serious: Yes (Other)
  Sender: FDA-Public Use
  Company Number: AU-B.I. PHARMACEUTICALS,INC./RIDGEFIELD-2012-AU-01839AU

PATIENT
  Age: 65 Year
  Sex: Female
  Weight: 100 kg

DRUGS (7)
  1. PRADAXA [Suspect]
     Indication: ATRIAL FIBRILLATION
     Dosage: 300 mg
     Dates: end: 20121026
  2. ACCURETIC [Concomitant]
     Dosage: 20/12.5
  3. ZANIDIP [Concomitant]
     Dosage: 10 mg
  4. ACCUPRIL [Concomitant]
     Dosage: 20 mg
  5. BETALOC [Concomitant]
     Dosage: 100 mg
  6. DIABEX [Concomitant]
     Dosage: 2000 mg
  7. DIAMICRON MR [Concomitant]
     Dosage: 60 mg

REACTIONS (1)
  - Deep vein thrombosis [Not Recovered/Not Resolved]
